FAERS Safety Report 6953786-6 (Version None)
Quarter: 2010Q3

REPORT INFORMATION
  Report Type: 
  Country: None (occurrence: None)
  Receive Date: 20100829
  Receipt Date: 20100625
  Transmission Date: 20110219
  Serious: No
  Sender: FDA-Public Use
  Company Number: US-ABBOTT-10P-163-0653696-00

PATIENT
  Sex: Male
  Weight: 124.85 kg

DRUGS (2)
  1. NIASPAN [Suspect]
     Indication: LOW DENSITY LIPOPROTEIN INCREASED
     Dates: start: 20100614, end: 20100620
  2. SIMVASTATIN [Concomitant]
     Indication: ARTERIAL DISORDER

REACTIONS (2)
  - DIARRHOEA [None]
  - PRURITUS [None]
